FAERS Safety Report 6142934-6 (Version None)
Quarter: 2009Q2

REPORT INFORMATION
  Report Type: 
  Country: None (occurrence: None)
  Receive Date: 20090403
  Receipt Date: 20090224
  Transmission Date: 20091009
  Serious: Yes (Other)
  Sender: FDA-Public Use
  Company Number: US-BAYER-200825909NA

PATIENT
  Age: 58 Year
  Sex: Female
  Weight: 64 kg

DRUGS (23)
  1. MAGNEVIST [Suspect]
     Indication: NUCLEAR MAGNETIC RESONANCE IMAGING
  2. OMNISCAN [Suspect]
     Indication: NUCLEAR MAGNETIC RESONANCE IMAGING
  3. OPTIMARK [Suspect]
     Indication: NUCLEAR MAGNETIC RESONANCE IMAGING
  4. MULTIHANCE [Suspect]
     Indication: NUCLEAR MAGNETIC RESONANCE IMAGING
  5. PROHANCE [Suspect]
     Indication: NUCLEAR MAGNETIC RESONANCE IMAGING
  6. PREMARIN [Concomitant]
  7. SYNTHROID [Concomitant]
  8. CLIMARA [Concomitant]
  9. EFFEXOR [Concomitant]
  10. REMERON [Concomitant]
  11. WELLBUTRIN [Concomitant]
  12. XANAX [Concomitant]
  13. LEXAPRO [Concomitant]
  14. AMBIEN [Concomitant]
  15. CRESTOR [Concomitant]
  16. TRICOR [Concomitant]
  17. LORTAB [Concomitant]
  18. LYRICA [Concomitant]
  19. VOLTAREN [Concomitant]
  20. TRILAFON [Concomitant]
  21. TENORMIN [Concomitant]
  22. CALCIUM WITH VITAMIN D [Concomitant]
     Dosage: TOTAL DAILY DOSE: 1200 MG
     Route: 048
  23. ZINC [Concomitant]
     Route: 048

REACTIONS (13)
  - ANXIETY [None]
  - CONNECTIVE TISSUE DISORDER [None]
  - EMOTIONAL DISTRESS [None]
  - FIBROSIS [None]
  - GENERAL PHYSICAL HEALTH DETERIORATION [None]
  - INJURY [None]
  - JOINT CONTRACTURE [None]
  - MOBILITY DECREASED [None]
  - MUSCLE CONTRACTURE [None]
  - NEPHROGENIC SYSTEMIC FIBROSIS [None]
  - PAIN [None]
  - SCAR [None]
  - SKIN FIBROSIS [None]
